FAERS Safety Report 8551993-2 (Version None)
Quarter: 2012Q3

REPORT INFORMATION
  Report Type: 
  Country: None (occurrence: None)
  Receive Date: 20120730
  Receipt Date: 20120723
  Transmission Date: 20120928
  Serious: Yes (Hospitalization, Other)
  Sender: FDA-Public Use
  Company Number: US-RB-031623-11

PATIENT
  Sex: Female

DRUGS (4)
  1. MULTI-VITAMINS [Concomitant]
     Indication: PREGNANCY
     Dosage: ONE DAILY
     Route: 048
  2. BUPRENORPHINE [Suspect]
     Indication: DRUG DEPENDENCE
     Route: 060
     Dates: end: 20110920
  3. SUBOXONE [Suspect]
     Indication: DRUG DEPENDENCE
     Route: 060
  4. NICOTINE [Suspect]
     Indication: NICOTINE DEPENDENCE
     Dosage: 1/2 PACK DAILY
     Route: 055

REACTIONS (8)
  - FOETAL HYPOKINESIA [None]
  - MATERNAL EXPOSURE DURING PREGNANCY [None]
  - PREMATURE DELIVERY [None]
  - HEPATITIS C RNA INCREASED [None]
  - PREMATURE LABOUR [None]
  - UNDERDOSE [None]
  - ABORTION THREATENED [None]
  - UMBILICAL CORD ABNORMALITY [None]
